FAERS Safety Report 15722237 (Version 4)
Quarter: 2019Q2

REPORT INFORMATION
  Report Type: Spontaneous
  Country: JP (occurrence: JP)
  Receive Date: 20181214
  Receipt Date: 20190403
  Transmission Date: 20190711
  Serious: Yes (Hospitalization, Other)
  Sender: FDA-Public Use
  Company Number: JP-GLAXOSMITHKLINE-JP2018JPN223401

PATIENT
  Age: 42 Year
  Sex: Female
  Weight: 52 kg

DRUGS (26)
  1. SANBETASON OPHTHALMIC SOLUTION [Concomitant]
     Indication: CONJUNCTIVAL HYPERAEMIA
  2. PREDONINE [Concomitant]
     Active Substance: PREDNISOLONE
     Dosage: UNK UNK, BID
     Dates: start: 20181120, end: 20181124
  3. NEUROTROPIN TABLET (SEPARATED CONSITUENT FROM RABBIT SKIN TREATED WITH [Concomitant]
     Indication: PAIN
  4. ROHYPNOL [Concomitant]
     Active Substance: FLUNITRAZEPAM
     Dosage: UNK
  5. PREDONINE [Concomitant]
     Active Substance: PREDNISOLONE
     Dosage: UNK UNK, BID
     Dates: start: 20181125, end: 20181129
  6. PREDONINE [Concomitant]
     Active Substance: PREDNISOLONE
     Dosage: 30 MG, BID, 20 MG IN MORNING, 10 MG AT NIGHT
     Dates: start: 20181130, end: 20181204
  7. LYRICA [Concomitant]
     Active Substance: PREGABALIN
     Indication: FIBROMYALGIA
     Dosage: 75 MG, 1D
     Dates: start: 20181112, end: 20181120
  8. LAMICTAL [Suspect]
     Active Substance: LAMOTRIGINE
     Indication: PAIN
     Dosage: UNK
     Route: 048
     Dates: start: 20181023, end: 20181106
  9. CYMBALTA [Concomitant]
     Active Substance: DULOXETINE HYDROCHLORIDE
     Dosage: 60 MG, UNK
     Route: 048
     Dates: start: 20181023, end: 20181112
  10. LAMICTAL [Suspect]
     Active Substance: LAMOTRIGINE
     Dosage: UNK
     Route: 048
     Dates: start: 20181109, end: 20181109
  11. VEGAMOX OPHTHALMIC SOLUTION [Concomitant]
     Indication: CONJUNCTIVAL HYPERAEMIA
  12. PREDONINE [Concomitant]
     Active Substance: PREDNISOLONE
     Dosage: 55 MG, BID, 35 MG IN MORNING, 20 MG AT NIGHT
     Route: 048
     Dates: start: 20181113, end: 20181119
  13. PREDONINE [Concomitant]
     Active Substance: PREDNISOLONE
     Dosage: 20 MG, QD
     Dates: start: 20181211
  14. NEUROTROPIN TABLET (SEPARATED CONSITUENT FROM RABBIT SKIN TREATED WITH [Concomitant]
     Indication: FIBROMYALGIA
     Dosage: UNK
     Route: 048
     Dates: start: 20181112
  15. PROPETO OINTMENT [Concomitant]
     Indication: DRY SKIN
     Dosage: UNK
     Route: 061
     Dates: start: 20181112
  16. PREDONINE [Concomitant]
     Active Substance: PREDNISOLONE
     Indication: STEVENS-JOHNSON SYNDROME
     Dosage: 20 MG, QD, AFTER DINNER
     Route: 048
     Dates: start: 20181112, end: 20181112
  17. VEGAMOX OPHTHALMIC SOLUTION [Concomitant]
     Indication: CONJUNCTIVAL OEDEMA
     Dosage: UNK
     Route: 031
     Dates: start: 20181112, end: 20181207
  18. LYRICA [Concomitant]
     Active Substance: PREGABALIN
     Indication: PAIN
     Dosage: 150 MG, 1D
     Route: 048
     Dates: start: 20181121, end: 20181126
  19. BILANOA [Concomitant]
     Active Substance: BILASTINE
     Dosage: UNK
  20. CYMBALTA [Concomitant]
     Active Substance: DULOXETINE HYDROCHLORIDE
     Indication: PAIN
     Dosage: UNK
     Route: 048
     Dates: start: 2013
  21. SANBETASON OPHTHALMIC SOLUTION [Concomitant]
     Indication: CONJUNCTIVAL OEDEMA
     Dosage: UNK
     Route: 031
     Dates: start: 20181112, end: 20181207
  22. LYRICA [Concomitant]
     Active Substance: PREGABALIN
     Dosage: 225 MG, 1D
     Route: 048
     Dates: start: 20181127
  23. LYRICA [Concomitant]
     Active Substance: PREGABALIN
     Dosage: UNK
     Route: 048
  24. HACHIMIJIOGAN [Concomitant]
     Active Substance: HERBALS
     Indication: FIBROMYALGIA
     Dosage: UNK
     Route: 048
     Dates: start: 20181107, end: 20181112
  25. PREDONINE [Concomitant]
     Active Substance: PREDNISOLONE
     Dosage: 25 MG, BID, 15 MG IN MORNING, 10 MG AT NIGHT
     Dates: start: 20181205, end: 20181210
  26. ZOLPIDEM TARTRATE. [Concomitant]
     Active Substance: ZOLPIDEM TARTRATE
     Dosage: UNK

REACTIONS (34)
  - Stevens-Johnson syndrome [Recovering/Resolving]
  - Oropharyngeal pain [Unknown]
  - Condition aggravated [Unknown]
  - Fibromyalgia [Recovering/Resolving]
  - Mucosal erosion [Recovering/Resolving]
  - Vulval ulceration [Unknown]
  - Conjunctival oedema [Unknown]
  - Anal haemorrhage [Unknown]
  - Pigmentation disorder [Unknown]
  - Product use in unapproved indication [Unknown]
  - Pyrexia [Recovered/Resolved]
  - Mouth swelling [Unknown]
  - Condition aggravated [Unknown]
  - Hypoaesthesia [Unknown]
  - Fatigue [Unknown]
  - Mucosal disorder [Unknown]
  - Rash maculo-papular [Recovered/Resolved]
  - Mucosal ulceration [Unknown]
  - Blister [Unknown]
  - Hepatic function abnormal [Recovered/Resolved]
  - Generalised erythema [Unknown]
  - Macule [Unknown]
  - Scar [Unknown]
  - Pain [Unknown]
  - Lymphadenopathy [Recovering/Resolving]
  - Rhinalgia [Unknown]
  - Pain of skin [Unknown]
  - Dyschezia [Recovering/Resolving]
  - Therapy cessation [Unknown]
  - Conjunctival hyperaemia [Recovered/Resolved]
  - Eye discharge [Unknown]
  - Dry skin [Unknown]
  - Scab [Unknown]
  - Muscle atrophy [Unknown]

NARRATIVE: CASE EVENT DATE: 20181023
